FAERS Safety Report 25740957 (Version 1)
Quarter: 2025Q3

REPORT INFORMATION
  Report Type: Spontaneous
  Country: US (occurrence: None)
  Receive Date: 20250829
  Receipt Date: 20250829
  Transmission Date: 20251020
  Serious: No
  Sender: FDA-CTU
  Company Number: None

PATIENT
  Age: 18 Year
  Sex: Female

DRUGS (1)
  1. HUMIRA [Suspect]
     Active Substance: ADALIMUMAB
     Indication: Hidradenitis
     Dosage: INJECT 80MG SUBCUTANEOUSLY EVERY 2 WEEKS AS DIRECTED.  ?
     Route: 058
     Dates: start: 202505

REACTIONS (4)
  - Hidradenitis [None]
  - Condition aggravated [None]
  - Infection [None]
  - Bacterial test positive [None]
